FAERS Safety Report 8069364-4 (Version None)
Quarter: 2012Q1

REPORT INFORMATION
  Report Type: 
  Country: None (occurrence: None)
  Receive Date: 20120118
  Receipt Date: 20120110
  Transmission Date: 20120608
  Serious: Yes (Other)
  Sender: FDA-Public Use
  Company Number: JPI-P-019239

PATIENT
  Age: 64 Year
  Sex: Male
  Weight: 97.0698 kg

DRUGS (4)
  1. XYREM [Suspect]
     Indication: NARCOLEPSY
     Dosage: 6 GM (3 GM, 2 IN 1 D), ORAL
     Route: 048
     Dates: start: 20111212, end: 20111231
  2. FLUOXETINE [Concomitant]
  3. MORPHINE [Suspect]
     Indication: ARTHRALGIA
     Dates: end: 20111213
  4. FINASTERIDE [Concomitant]

REACTIONS (4)
  - WITHDRAWAL SYNDROME [None]
  - NIGHTMARE [None]
  - PAIN [None]
  - HYPERTENSION [None]
